FAERS Safety Report 5305907-9 (Version None)
Quarter: 2007Q2

REPORT INFORMATION
  Report Type: 
  Country: None (occurrence: None)
  Receive Date: 20070424
  Receipt Date: 20070201
  Transmission Date: 20071010
  Serious: Yes (Other)
  Sender: FDA-Public Use
  Company Number: GB-GLAXOSMITHKLINE-B0457703A

PATIENT
  Age: 51 Year
  Sex: Male

DRUGS (9)
  1. MELPHALAN [Suspect]
     Route: 065
  2. CARMUSTINE [Suspect]
     Route: 065
  3. ETOPOSIDE [Suspect]
     Route: 065
  4. CYTARABINE [Suspect]
     Route: 065
  5. RITUXIMAB [Suspect]
     Route: 065
     Dates: start: 20040801
  6. IFOSFAMIDE [Concomitant]
     Route: 065
  7. CYTOSINE [Concomitant]
     Route: 065
  8. ARABINOSIDE [Concomitant]
     Route: 065
  9. ETOPOSIDE [Concomitant]
     Route: 065

REACTIONS (3)
  - CYTOMEGALOVIRUS ENTEROCOLITIS [None]
  - DIARRHOEA [None]
  - MUCOSAL INFLAMMATION [None]
